FAERS Safety Report 5876017-7 (Version None)
Quarter: 2008Q3

REPORT INFORMATION
  Report Type: 
  Country: None (occurrence: None)
  Receive Date: 20080910
  Receipt Date: 20080908
  Transmission Date: 20090109
  Serious: Yes (Death, Life-Threatening)
  Sender: FDA-Public Use
  Company Number: DE-JNJFOC-20080803562

PATIENT
  Age: 74 Year
  Sex: Male

DRUGS (6)
  1. REOPRO [Suspect]
     Dosage: 12 HR INFUSION, STOPPED AT 4 HR
     Route: 016
  2. REOPRO [Suspect]
     Indication: ACUTE MYOCARDIAL INFARCTION
     Route: 016
  3. HEPARIN [Concomitant]
  4. HEPARIN [Concomitant]
     Indication: ACUTE MYOCARDIAL INFARCTION
  5. ASPIRIN [Concomitant]
     Indication: ACUTE MYOCARDIAL INFARCTION
  6. CLOPIDOGREL [Concomitant]
     Indication: ACUTE MYOCARDIAL INFARCTION

REACTIONS (1)
  - CEREBRAL HAEMORRHAGE [None]
